FAERS Safety Report 9365092 (Version 2)
Quarter: 2013Q3

REPORT INFORMATION
  Report Type: Spontaneous
  Country: US (occurrence: US)
  Receive Date: 20130624
  Receipt Date: 20130806
  Transmission Date: 20140515
  Serious: No
  Sender: FDA-Public Use
  Company Number: US-PFIZER INC-2013185042

PATIENT
  Age: 50 Year
  Sex: Male

DRUGS (4)
  1. BOSULIF [Suspect]
     Indication: CHRONIC MYELOID LEUKAEMIA
     Dosage: 500 MG, DAILY
     Dates: start: 20130601
  2. AMLODIPINE [Concomitant]
     Indication: HYPERTENSION
     Dosage: UNK
  3. METOPROLOL [Concomitant]
     Dosage: 50 MG, 2X/DAY
  4. NORVASC [Concomitant]
     Dosage: 10 MG, 1X/DAY

REACTIONS (8)
  - Abdominal discomfort [Unknown]
  - Constipation [Not Recovered/Not Resolved]
  - Abdominal pain lower [Not Recovered/Not Resolved]
  - Rash pruritic [Not Recovered/Not Resolved]
  - Cough [Unknown]
  - Abdominal distension [Not Recovered/Not Resolved]
  - Bone pain [Unknown]
  - Nausea [Unknown]
